FAERS Safety Report 7787695-X (Version None)
Quarter: 2011Q3

REPORT INFORMATION
  Report Type: 
  Country: None (occurrence: None)
  Receive Date: 20110929
  Receipt Date: 20110920
  Transmission Date: 20111222
  Serious: Yes (Hospitalization)
  Sender: FDA-Public Use
  Company Number: US-ASTRAZENECA-2011SE56740

PATIENT
  Age: 62 Year
  Sex: Male

DRUGS (10)
  1. METFORMIN HCL [Concomitant]
  2. THYROID PILL [Concomitant]
  3. ASPIRIN [Concomitant]
  4. ADVAIR DISKUS 100/50 [Concomitant]
  5. SPIRIVA [Concomitant]
  6. HEART PILL [Concomitant]
  7. LITIAMOR [Concomitant]
  8. NEXIUM [Suspect]
     Route: 048
  9. INSULIN [Suspect]
  10. HUMALOG [Concomitant]
     Dosage: 3 SHOTS  DAILY

REACTIONS (4)
  - RIB FRACTURE [None]
  - BLOOD GLUCOSE DECREASED [None]
  - TRAUMATIC LUNG INJURY [None]
  - ROAD TRAFFIC ACCIDENT [None]
